FAERS Safety Report 7454150-6 (Version None)
Quarter: 2011Q2

REPORT INFORMATION
  Report Type: 
  Country: None (occurrence: None)
  Receive Date: 20110503
  Receipt Date: 20110425
  Transmission Date: 20111010
  Serious: No
  Sender: FDA-Public Use
  Company Number: US-BIOGENIDEC-2011BI015629

PATIENT
  Age: 53 Year
  Sex: Female

DRUGS (2)
  1. TYSABRI [Suspect]
     Indication: MULTIPLE SCLEROSIS
     Route: 042
     Dates: start: 20070411
  2. TYSABRI [Suspect]
     Route: 042
     Dates: end: 20050218

REACTIONS (3)
  - PAIN IN EXTREMITY [None]
  - PANIC ATTACK [None]
  - MULTIPLE SCLEROSIS RELAPSE [None]
